FAERS Safety Report 12274744 (Version 1)
Quarter: 2016Q2

REPORT INFORMATION
  Report Type: Spontaneous
  Country: US (occurrence: US)
  Receive Date: 20160415
  Receipt Date: 20160415
  Transmission Date: 20160815
  Serious: No
  Sender: FDA-Public Use
  Company Number: US-ALLERGAN-1507856US

PATIENT
  Sex: Female

DRUGS (8)
  1. LUMIGAN [Suspect]
     Active Substance: BIMATOPROST
     Indication: POSTOPERATIVE CARE
     Dosage: UNK, QID
     Route: 047
     Dates: start: 201407
  2. LUMIGAN [Suspect]
     Active Substance: BIMATOPROST
     Dosage: UNK UNK, TID
     Dates: start: 201407
  3. LUMIGAN [Suspect]
     Active Substance: BIMATOPROST
     Dosage: UNK, BID
     Dates: start: 201407
  4. LUMIGAN [Suspect]
     Active Substance: BIMATOPROST
     Dosage: UNK, QPM
     Dates: start: 201407
  5. LUMIGAN [Suspect]
     Active Substance: BIMATOPROST
     Dosage: UNK, QID
     Dates: start: 201408
  6. LUMIGAN [Suspect]
     Active Substance: BIMATOPROST
     Dosage: UNK, TID
     Dates: start: 201408
  7. LUMIGAN [Suspect]
     Active Substance: BIMATOPROST
     Dosage: UNK, BID
     Dates: start: 201408
  8. LUMIGAN [Suspect]
     Active Substance: BIMATOPROST
     Dosage: UNK, QPM
     Dates: start: 201408, end: 201409

REACTIONS (4)
  - Skin tightness [Recovered/Resolved]
  - Erythema of eyelid [Recovered/Resolved]
  - Growth of eyelashes [Recovered/Resolved]
  - Inappropriate schedule of drug administration [Unknown]

NARRATIVE: CASE EVENT DATE: 2014
